FAERS Safety Report 6216722-6 (Version None)
Quarter: 2009Q2

REPORT INFORMATION
  Report Type: 
  Country: None (occurrence: None)
  Receive Date: 20090605
  Receipt Date: 20090528
  Transmission Date: 20091009
  Serious: Yes (Hospitalization)
  Sender: FDA-Public Use
  Company Number: DE-ABBOTT-04P-062-0278495-03

PATIENT
  Sex: Female
  Weight: 61 kg

DRUGS (39)
  1. HUMIRA [Suspect]
     Indication: RHEUMATOID ARTHRITIS
     Dosage: 40 MG
     Route: 058
     Dates: start: 20031218, end: 20040911
  2. HUMIRA [Suspect]
     Route: 058
     Dates: start: 20041101
  3. METHOTREXATE SODIUM [Concomitant]
     Indication: RHEUMATOID ARTHRITIS
     Route: 054
     Dates: start: 19920624, end: 20020204
  4. LEFLUNOMIDE [Concomitant]
     Indication: RHEUMATOID ARTHRITIS
     Route: 048
     Dates: start: 20000608
  5. CLOPREDNOL [Concomitant]
     Indication: RHEUMATOID ARTHRITIS
     Route: 048
     Dates: start: 19970502
  6. VALORON N [Concomitant]
     Indication: RHEUMATOID ARTHRITIS
     Dates: start: 20000608
  7. LANSOPRAZOLE [Concomitant]
     Indication: ULCER
     Route: 048
     Dates: start: 19980210
  8. AMITRIPTYLINE HYDROCHLORIDE [Concomitant]
     Indication: DEPRESSION
     Route: 048
     Dates: start: 19970624
  9. COLOXYL WITH DANTHRON [Concomitant]
     Indication: OSTEOPOROSIS
     Route: 048
     Dates: start: 19970624
  10. VASERETIC [Concomitant]
     Indication: HYPERTENSION
     Route: 048
  11. BISOPROLOL FUMARATE [Concomitant]
     Indication: HYPERTENSION
     Route: 048
  12. BISOPROLOL FUMARATE [Concomitant]
     Route: 048
  13. ASPIRIN [Concomitant]
     Indication: CORONARY ARTERY DISEASE
     Route: 048
  14. SORTIS [Concomitant]
     Indication: HYPERLIPIDAEMIA
     Route: 048
  15. COMMERCIAL HUMIRA [Concomitant]
     Indication: RHEUMATOID ARTHRITIS
     Dates: start: 20031110
  16. TRAMADOL HCL [Concomitant]
     Indication: PAIN
  17. VOLTAREN [Concomitant]
     Indication: PAIN
  18. PANTOZOL [Concomitant]
     Indication: PROPHYLAXIS AGAINST GASTROINTESTINAL ULCER
     Dates: start: 20040301, end: 20081001
  19. BISOPROLOL FUMARATE [Concomitant]
     Indication: CORONARY ARTERY DISEASE
  20. BISOPROLOL FUMARATE [Concomitant]
     Indication: HYPERTENSION
  21. DECORTIN [Concomitant]
     Indication: RHEUMATOID ARTHRITIS
  22. CORVATON [Concomitant]
     Indication: CORONARY ARTERY DISEASE
  23. RENACOR [Concomitant]
     Indication: HYPERTENSION
  24. EUTHYROX [Concomitant]
     Indication: GOITRE
  25. ARAVA [Concomitant]
     Indication: RHEUMATOID ARTHRITIS
  26. EMBOLEX [Concomitant]
     Indication: THROMBOSIS PROPHYLAXIS
     Route: 058
  27. CLOPIDOGREL [Concomitant]
     Indication: CORONARY ARTERY DISEASE
  28. DURAGESIC-100 [Concomitant]
     Indication: PAIN
  29. PLAVIX [Concomitant]
     Indication: CORONARY ARTERY DISEASE
  30. VIGANTOLETTEN [Concomitant]
     Indication: CONSTIPATION
  31. SAROTEN [Concomitant]
     Indication: PAIN
  32. SYNTESTAN [Concomitant]
     Indication: RHEUMATOID ARTHRITIS
  33. NORVASO [Concomitant]
     Indication: HYPERTENSION
  34. ENALAPRIL [Concomitant]
     Indication: HYPERTENSION
  35. LACTULOSE [Concomitant]
     Indication: CONSTIPATION
  36. CLINDAMYCIN [Concomitant]
     Indication: INFECTION
  37. CLINDAMYCIN [Concomitant]
  38. CLINDAMYCIN [Concomitant]
  39. NORVASC [Concomitant]
     Indication: HYPERTENSION

REACTIONS (2)
  - ARTHRITIS BACTERIAL [None]
  - HYPERTENSION [None]
